FAERS Safety Report 11227146 (Version 1)
Quarter: 2015Q2

REPORT INFORMATION
  Report Type: Spontaneous
  Country: GB (occurrence: GB)
  Receive Date: 20150630
  Receipt Date: 20150630
  Transmission Date: 20150821
  Serious: Yes (Hospitalization)
  Sender: FDA-Public Use
  Company Number: GB-ACCORD-031639

PATIENT
  Age: 12 Year
  Sex: Female
  Weight: 50 kg

DRUGS (13)
  1. ONDANSETRON [Concomitant]
     Active Substance: ONDANSETRON
  2. VALACICLOVIR [Concomitant]
     Active Substance: VALACYCLOVIR HYDROCHLORIDE
  3. LEVOMEPROMAZINE [Concomitant]
     Active Substance: LEVOMEPROMAZINE
  4. AMILORIDE [Concomitant]
     Active Substance: AMILORIDE
  5. METOCLOPRAMIDE. [Concomitant]
     Active Substance: METOCLOPRAMIDE
  6. VINCRISTINE [Concomitant]
     Active Substance: VINCRISTINE
  7. CLARITHROMYCIN/CLARITHROMYCIN LACTOBIONATE [Concomitant]
  8. METHOTREXATE [Suspect]
     Active Substance: METHOTREXATE
     Indication: ACUTE LEUKAEMIA IN REMISSION
     Route: 037
     Dates: start: 20150128, end: 20150128
  9. DEXAMETHASONE. [Concomitant]
     Active Substance: DEXAMETHASONE
  10. POSACONAZOLE [Concomitant]
     Active Substance: POSACONAZOLE
  11. SULFAMETHOXAZOLE/TRIMETHOPRIM [Concomitant]
  12. CASPOFUNGIN [Concomitant]
     Active Substance: CASPOFUNGIN
  13. NITROUS OXIDE. [Suspect]
     Active Substance: NITROUS OXIDE
     Indication: GENERAL ANAESTHESIA
     Route: 055
     Dates: start: 20150128, end: 20150128

REACTIONS (3)
  - Vitamin B12 decreased [Recovered/Resolved]
  - Leukoencephalopathy [Recovered/Resolved with Sequelae]
  - Brain oedema [Recovered/Resolved with Sequelae]

NARRATIVE: CASE EVENT DATE: 20150201
